FAERS Safety Report 8345509-3 (Version None)
Quarter: 2012Q2

REPORT INFORMATION
  Report Type: 
  Country: None (occurrence: None)
  Receive Date: 20120508
  Receipt Date: 20120507
  Transmission Date: 20120825
  Serious: Yes (Hospitalization)
  Sender: FDA-Public Use
  Company Number: US-PFIZER INC-2012111339

PATIENT
  Sex: Female
  Weight: 63.946 kg

DRUGS (7)
  1. ATENOLOL [Concomitant]
     Dosage: UNK
  2. LYRICA [Suspect]
     Indication: NEUROPATHY PERIPHERAL
     Dosage: 50 MG, 2X/DAY
     Route: 048
     Dates: start: 20090101
  3. TRAMADOL [Concomitant]
     Dosage: UNK
  4. PREVACID [Concomitant]
     Dosage: UNK
  5. NORVASC [Concomitant]
     Dosage: UNK
  6. MECLIZINE [Concomitant]
     Dosage: UNK, AS NEEDED
  7. LIPITOR [Concomitant]
     Dosage: UNK

REACTIONS (2)
  - ANGINA PECTORIS [None]
  - CHEST PAIN [None]
